FAERS Safety Report 9149171 (Version 1)
Quarter: 2013Q1

REPORT INFORMATION
  Report Type: Spontaneous
  Country: US (occurrence: None)
  Receive Date: 20130228
  Receipt Date: 20130228
  Transmission Date: 20140127
  Serious: Yes (Other)
  Sender: FDA-Public Use
  Company Number: None

PATIENT
  Sex: Female
  Weight: 90.72 kg

DRUGS (1)
  1. BENICAR [Suspect]
     Dosage: 1 TABLET, DAILY 047 ROUTE
     Dates: start: 2008

REACTIONS (3)
  - Pain [None]
  - Myalgia [None]
  - Gait disturbance [None]
